FAERS Safety Report 4569370-8 (Version None)
Quarter: 2005Q1

REPORT INFORMATION
  Report Type: 
  Country: None (occurrence: None)
  Receive Date: 20050201
  Receipt Date: 20050120
  Transmission Date: 20050727
  Serious: Yes (Other)
  Sender: FDA-Public Use
  Company Number: 2005017763

PATIENT
  Sex: Female

DRUGS (2)
  1. NEURONTIN [Suspect]
     Indication: NEURALGIA
     Dosage: 1800 MG (DAILY)
  2. LANSOPRAZOLE [Concomitant]

REACTIONS (4)
  - DEPRESSION [None]
  - MIGRAINE [None]
  - NEURALGIA [None]
  - NUCLEAR MAGNETIC RESONANCE IMAGING BRAIN ABNORMAL [None]
